FAERS Safety Report 5052616-X (Version None)
Quarter: 2006Q3

REPORT INFORMATION
  Report Type: 
  Country: None (occurrence: None)
  Receive Date: 20060717
  Receipt Date: 20060707
  Transmission Date: 20061208
  Serious: Yes (Other)
  Sender: FDA-Public Use
  Company Number: 2006012414

PATIENT
  Sex: Female
  Weight: 75 kg

DRUGS (2)
  1. WELLVONE [Suspect]
     Indication: ANTIBIOTIC PROPHYLAXIS
     Dosage: 750MG THREE TIMES PER WEEK
     Route: 048
  2. ZYVOXID [Suspect]
     Route: 048

REACTIONS (4)
  - DIARRHOEA [None]
  - DYSPNOEA [None]
  - INFECTION [None]
  - LACTIC ACIDOSIS [None]
